FAERS Safety Report 8937515 (Version 1)
Quarter: 2012Q4

REPORT INFORMATION
  Report Type: Spontaneous
  Country: US (occurrence: None)
  Receive Date: 20121128
  Receipt Date: 20121128
  Transmission Date: 20130627
  Serious: Yes (Hospitalization)
  Sender: FDA-Public Use
  Company Number: None

PATIENT
  Age: 70 Year
  Sex: Female
  Weight: 91 kg

DRUGS (13)
  1. CYCLOSPORINE A [Suspect]
     Indication: BRONCHIOLITIS OBLITERANS
     Route: 055
     Dates: start: 20120925, end: 20121125
  2. METOPROLOL [Concomitant]
  3. LOVENOX [Concomitant]
  4. COUMADIN [Concomitant]
  5. PREDNISONE [Concomitant]
  6. VALGANCICLOVIR [Concomitant]
  7. TRICOR [Concomitant]
  8. OMEPRAZOLE [Concomitant]
  9. PRAVASTATIN [Concomitant]
  10. LASIX [Concomitant]
  11. PROGRAF [Concomitant]
  12. IMURAN [Concomitant]
  13. CATAPRESS PATCH MULTIVITAMIN [Concomitant]

REACTIONS (1)
  - Influenza like illness [None]
